FAERS Safety Report 15678757 (Version 1)
Quarter: 2018Q4

REPORT INFORMATION
  Report Type: Spontaneous
  Country: US (occurrence: US)
  Receive Date: 20181201
  Receipt Date: 20181201
  Transmission Date: 20190205
  Serious: Yes (Death)
  Sender: FDA-Public Use
  Company Number: None

PATIENT
  Age: 66 Year
  Sex: Male
  Weight: 83.25 kg

DRUGS (1)
  1. OPDIVO [Suspect]
     Active Substance: NIVOLUMAB
     Indication: NON-SMALL CELL LUNG CANCER
     Dosage: ?          QUANTITY:1 DROP(S);OTHER FREQUENCY:2 TIMES PER MONTH;?
     Route: 042
     Dates: start: 20180403, end: 20180501

REACTIONS (4)
  - Oral mucosal blistering [None]
  - Oral candidiasis [None]
  - Bone pain [None]
  - Pneumonitis [None]

NARRATIVE: CASE EVENT DATE: 20180510
